FAERS Safety Report 6377469-9 (Version None)
Quarter: 2009Q3

REPORT INFORMATION
  Report Type: 
  Country: None (occurrence: None)
  Receive Date: 20090923
  Receipt Date: 20090923
  Transmission Date: 20100115
  Serious: Yes (Life-Threatening, Hospitalization)
  Sender: FDA-Public Use
  Company Number: None

PATIENT
  Age: 69 Year
  Sex: Male
  Weight: 62.6 kg

DRUGS (3)
  1. TYLENOL (CAPLET) [Suspect]
     Indication: PAIN
     Dosage: UNKNOWN
     Dates: start: 20090726
  2. ATIVAN [Concomitant]
  3. KLONOPIN [Concomitant]

REACTIONS (2)
  - ALANINE AMINOTRANSFERASE INCREASED [None]
  - ASPARTATE AMINOTRANSFERASE INCREASED [None]
